FAERS Safety Report 4690740-1 (Version None)
Quarter: 2005Q2

REPORT INFORMATION
  Report Type: 
  Country: None (occurrence: None)
  Receive Date: 20050614
  Receipt Date: 20050614
  Transmission Date: 20051028
  Serious: No
  Sender: FDA-Public Use
  Company Number: None

PATIENT
  Age: 50 Year
  Sex: Male
  Weight: 99.7913 kg

DRUGS (1)
  1. CLARITIN-D 24 HOUR [Suspect]
     Indication: MULTIPLE ALLERGIES
     Dosage: 24 HOUR    ONCE A DAY  ORAL
     Route: 048
     Dates: start: 20050310, end: 20050502

REACTIONS (2)
  - DYSURIA [None]
  - URINARY RETENTION [None]
